FAERS Safety Report 4324858-X (Version None)
Quarter: 2004Q1

REPORT INFORMATION
  Report Type: 
  Country: None (occurrence: None)
  Receive Date: 20040323
  Receipt Date: 20040308
  Transmission Date: 20041129
  Serious: Yes (Other)
  Sender: FDA-Public Use
  Company Number: 2004006431

PATIENT
  Age: 65 Year
  Sex: Female

DRUGS (1)
  1. NEURONTIN [Suspect]
     Indication: HERPES ZOSTER
     Dosage: 200 MG (BID), ORAL
     Route: 048
     Dates: start: 20030101

REACTIONS (9)
  - ARTHRALGIA [None]
  - CARDIOMEGALY [None]
  - HEADACHE [None]
  - MUSCULOSKELETAL STIFFNESS [None]
  - MYALGIA [None]
  - NECK PAIN [None]
  - PYREXIA [None]
  - RED BLOOD CELL SEDIMENTATION RATE INCREASED [None]
  - TEMPORAL ARTERITIS [None]
